FAERS Safety Report 10054256 (Version 4)
Quarter: 2014Q2

REPORT INFORMATION
  Report Type: Report from Study
  Country: US (occurrence: US)
  Receive Date: 20140402
  Receipt Date: 20140614
  Transmission Date: 20141212
  Serious: Yes (Hospitalization)
  Sender: FDA-Public Use
  Company Number: US-ALEXION-A201400930

PATIENT
  Sex: 0

DRUGS (1)
  1. SOLIRIS [Suspect]
     Indication: HAEMOLYTIC URAEMIC SYNDROME
     Dosage: 1200 MG, Q2W
     Route: 042
     Dates: start: 20140221

REACTIONS (6)
  - Haematemesis [Unknown]
  - Type 1 diabetes mellitus [Unknown]
  - Diarrhoea [Recovered/Resolved]
  - Diarrhoea [Unknown]
  - Vomiting [Unknown]
  - Depression [Not Recovered/Not Resolved]
